FAERS Safety Report 6255802-6 (Version None)
Quarter: 2009Q3

REPORT INFORMATION
  Report Type: 
  Country: None (occurrence: None)
  Receive Date: 20090703
  Receipt Date: 20090626
  Transmission Date: 20100115
  Serious: Yes (Other)
  Sender: FDA-Public Use
  Company Number: US-RANBAXY-2009US-24247

PATIENT

DRUGS (1)
  1. PHENOBARBITAL [Suspect]
     Indication: EPILEPSY
     Dosage: UNK, UNK
     Route: 065

REACTIONS (2)
  - AMNESIA [None]
  - DRUG EXPOSURE DURING PREGNANCY [None]
